FAERS Safety Report 15187912 (Version 1)
Quarter: 2018Q3

REPORT INFORMATION
  Report Type: Spontaneous
  Country: US (occurrence: US)
  Receive Date: 20180724
  Receipt Date: 20180724
  Transmission Date: 20181010
  Serious: No
  Sender: FDA-Public Use
  Company Number: US-BAUSCH-BL-2018-000446

PATIENT
  Age: 57 Year
  Sex: Female
  Weight: 61.29 kg

DRUGS (2)
  1. JUBLIA [Suspect]
     Active Substance: EFINACONAZOLE
     Indication: ONYCHOMYCOSIS
     Dosage: USED FOR 4 DAYS
     Route: 061
     Dates: start: 201712, end: 201712
  2. JUBLIA [Suspect]
     Active Substance: EFINACONAZOLE
     Dosage: USED FOR 2 DAYS
     Route: 061
     Dates: start: 201712, end: 201712

REACTIONS (4)
  - Nail discolouration [Not Recovered/Not Resolved]
  - Onychalgia [Recovered/Resolved]
  - Drug ineffective for unapproved indication [Recovered/Resolved]
  - Off label use [Recovered/Resolved]

NARRATIVE: CASE EVENT DATE: 201712
